FAERS Safety Report 7365573-8 (Version None)
Quarter: 2011Q1

REPORT INFORMATION
  Report Type: 
  Country: None (occurrence: None)
  Receive Date: 20110322
  Receipt Date: 20091122
  Transmission Date: 20110831
  Serious: Yes (Death, Hospitalization, Other)
  Sender: FDA-Public Use
  Company Number: US-BAYER-200939887NA

PATIENT
  Sex: Male
  Weight: 83.447 kg

DRUGS (42)
  1. DIGOXIN [Concomitant]
     Dosage: 0.125 MG, UNK
     Route: 048
  2. HYDROCHLOROTHIAZIDE [Concomitant]
  3. FENOLDOPAM [Concomitant]
     Dosage: 6.3CC/HR
     Route: 042
     Dates: start: 20020220, end: 20020221
  4. AZTREONAM [Concomitant]
     Dosage: UNK
     Dates: start: 20020822
  5. ASPIRIN [Concomitant]
     Route: 048
  6. HYDROXIZINE [Concomitant]
     Dosage: 25 MG, TID
     Route: 048
  7. NEXIUM [Concomitant]
     Dosage: 40 MG, QD
     Route: 048
  8. NOREPINEPHRINE BITARTRATE [Concomitant]
     Dosage: 24 CC/HR
     Route: 042
     Dates: start: 20020220, end: 20020221
  9. RED BLOOD CELLS [Concomitant]
     Dosage: 2 UNITS
     Route: 042
     Dates: start: 20020221
  10. DOPAMINE [Concomitant]
     Dosage: UNK
     Route: 042
     Dates: start: 20020227
  11. PRIMAXIN [Concomitant]
     Dosage: UNK
     Dates: start: 20020822
  12. TRASYLOL [Suspect]
     Indication: CORONARY ARTERY BYPASS
  13. TRASYLOL [Suspect]
  14. NITROGLYCERIN [Concomitant]
     Dosage: 3 CC/HR
     Route: 042
     Dates: start: 20020220
  15. MIDAZOLAM [Concomitant]
     Dosage: UNK
     Dates: start: 20020220, end: 20020220
  16. VANCOMYCIN [Concomitant]
     Dosage: UNK
     Dates: start: 20020313
  17. DETROL LA [Concomitant]
     Dosage: 4 MG, QD
     Route: 048
  18. CHOLESTYRAMINE [Concomitant]
     Dosage: IN 6 OUNCES WATER, TID
     Route: 048
  19. PLATELETS [Concomitant]
     Dosage: 1 U, UNK
     Route: 042
     Dates: start: 20020220
  20. PREDNISONE [Concomitant]
     Dosage: UNK
     Route: 048
     Dates: start: 20020313
  21. GEMZAR [Concomitant]
     Dosage: UNK
     Dates: start: 20030122
  22. TRASYLOL [Suspect]
     Indication: AORTIC VALVE REPLACEMENT
     Dosage: UNK
     Route: 042
     Dates: start: 20010228
  23. LEVAQUIN [Concomitant]
     Route: 048
  24. VIOXX [Concomitant]
     Dosage: 25 MG, QD
     Route: 048
  25. FLOMAX [Concomitant]
     Dosage: 0.4 MG, QD
     Route: 048
  26. INSULIN [Concomitant]
     Dosage: 1 CC/HR
     Route: 042
     Dates: start: 20020220, end: 20020220
  27. FENTANYL [Concomitant]
     Dosage: UNK
     Dates: start: 20020220, end: 20020220
  28. LIDOCAINE [Concomitant]
     Dosage: UNK
     Dates: start: 20020220
  29. PLASMA [Concomitant]
     Dosage: 2 U, UNK
     Route: 042
     Dates: start: 20020220
  30. SOLU-MEDROL [Concomitant]
     Dosage: UNK
     Route: 042
     Dates: start: 20020313
  31. URECHOLINE [Concomitant]
     Dosage: UNK
     Dates: start: 20030122
  32. CLONAZEPAM [Concomitant]
     Dosage: 0.5 MG, QD
     Route: 048
  33. RED BLOOD CELLS [Concomitant]
     Dosage: 3 U, UNK
     Route: 042
     Dates: start: 20020220
  34. BLOOD AND RELATED PRODUCTS [Concomitant]
     Dosage: 4 U, UNK
     Route: 042
     Dates: start: 20020220
  35. AMIKACIN [Concomitant]
     Dosage: UNK
     Dates: start: 20020822
  36. LASIX [Concomitant]
     Dosage: 20 MG, UNK
     Route: 048
  37. DARVOCET [Concomitant]
     Dosage: 100 MG, UNK
     Route: 048
  38. ZOSYN [Concomitant]
     Route: 048
  39. MECLIZINE [Concomitant]
  40. HEPARIN [Concomitant]
     Dosage: 20000 U, UNK
     Route: 042
     Dates: start: 20020220, end: 20020220
  41. PROTAMINE SULFATE [Concomitant]
     Dosage: 400 MG, UNK
     Route: 042
     Dates: start: 20020220, end: 20020220
  42. ANCEF [Concomitant]
     Dosage: 1 G, UNK
     Route: 042
     Dates: start: 20020220

REACTIONS (13)
  - RENAL INJURY [None]
  - EMOTIONAL DISTRESS [None]
  - STRESS [None]
  - ANXIETY [None]
  - MULTI-ORGAN FAILURE [None]
  - UNEVALUABLE EVENT [None]
  - ANHEDONIA [None]
  - PAIN [None]
  - RENAL FAILURE [None]
  - FEAR [None]
  - DEATH [None]
  - RENAL IMPAIRMENT [None]
  - INJURY [None]
